FAERS Safety Report 6230374-0 (Version None)
Quarter: 2009Q2

REPORT INFORMATION
  Report Type: 
  Country: None (occurrence: None)
  Receive Date: 20090611
  Receipt Date: 20090604
  Transmission Date: 20091009
  Serious: Yes (Death, Hospitalization, Other)
  Sender: FDA-Public Use
  Company Number: ENTC2009-0180

PATIENT
  Age: 92 Year
  Sex: Female

DRUGS (6)
  1. STALEVO 100 [Suspect]
     Indication: PARKINSON'S DISEASE
     Dosage: 2 X 100/25/200 MG, ORAL
     Route: 048
  2. SERTRALINE HYDROCHLORIDE [Concomitant]
  3. VITAMINS [Concomitant]
  4. COLCHICINE [Concomitant]
  5. CLONAZEPAM [Concomitant]
  6. NOVALGINA [Concomitant]

REACTIONS (9)
  - ACUTE RESPIRATORY FAILURE [None]
  - CARDIAC FAILURE [None]
  - CHOKING [None]
  - DIARRHOEA [None]
  - DYSPHAGIA [None]
  - LACTOSE INTOLERANCE [None]
  - OBSTRUCTIVE AIRWAYS DISORDER [None]
  - PNEUMONIA [None]
  - WEIGHT DECREASED [None]
